FAERS Safety Report 5216717-5 (Version None)
Quarter: 2007Q1

REPORT INFORMATION
  Report Type: 
  Country: None (occurrence: None)
  Receive Date: 20061130
  Receipt Date: 20060629
  Transmission Date: 20070707
  Serious: Yes (Hospitalization)
  Sender: FDA-Public Use
  Company Number: US200603000415

PATIENT
  Age: 55 Year
  Sex: Male
  Weight: 115.6 kg

DRUGS (5)
  1. ZYPREXA [Suspect]
     Dosage: SEE IMAGE
     Dates: start: 19970630, end: 19981219
  2. ZYPREXA [Suspect]
     Dosage: SEE IMAGE
     Dates: start: 19990306, end: 20000630
  3. ZYPREXA [Suspect]
     Dosage: SEE IMAGE
     Dates: start: 20000701, end: 20020301
  4. ZYPREXA [Suspect]
     Dosage: SEE IMAGE
     Dates: start: 20020327, end: 20040701
  5. HYDROCHLOROTHIAZIDE [Concomitant]

REACTIONS (6)
  - DIABETES MELLITUS [None]
  - DIABETIC KETOACIDOSIS [None]
  - HYPERLIPIDAEMIA [None]
  - HYPERTENSION [None]
  - METABOLIC DISORDER [None]
  - WEIGHT INCREASED [None]
